FAERS Safety Report 24588448 (Version 1)
Quarter: 2024Q4

REPORT INFORMATION
  Report Type: Spontaneous
  Country: US (occurrence: US)
  Receive Date: 20241107
  Receipt Date: 20241107
  Transmission Date: 20250115
  Serious: No
  Sender: SANDOZ
  Company Number: US-SANDOZ-SDZ2024US092823

PATIENT
  Sex: Female

DRUGS (1)
  1. ONDANSETRON [Suspect]
     Active Substance: ONDANSETRON
     Indication: Psoriasis
     Dosage: 4 MG
     Route: 048

REACTIONS (1)
  - Drug ineffective [Unknown]
